FAERS Safety Report 17880419 (Version 1)
Quarter: 2020Q2

REPORT INFORMATION
  Report Type: Spontaneous
  Country: US (occurrence: US)
  Receive Date: 20200610
  Receipt Date: 20200610
  Transmission Date: 20200714
  Serious: Yes (Other)
  Sender: FDA-Public Use
  Company Number: None

PATIENT
  Age: 84 Year
  Sex: Male

DRUGS (4)
  1. CLOPIDOGREL [Concomitant]
     Active Substance: CLOPIDOGREL BISULFATE
  2. POTASSIUM 20MEQ TABLET [Concomitant]
  3. ENBREL [Suspect]
     Active Substance: ETANERCEPT
     Dosage: ?          OTHER FREQUENCY:50MG SQ WEEKLY;?
     Route: 058
  4. ATORVASTATIN 20MG [Concomitant]
     Active Substance: ATORVASTATIN

REACTIONS (2)
  - Rash [None]
  - Pemphigoid [None]

NARRATIVE: CASE EVENT DATE: 20200610
